FAERS Safety Report 7077108-8 (Version None)
Quarter: 2010Q4

REPORT INFORMATION
  Report Type: 
  Country: None (occurrence: None)
  Receive Date: 20101101
  Receipt Date: 20101015
  Transmission Date: 20110411
  Serious: Yes (Other)
  Sender: FDA-Public Use
  Company Number: GB-ROCHE-735277

PATIENT
  Age: 31 Year
  Sex: Female

DRUGS (4)
  1. MYCOPHENOLATE MOFETIL [Suspect]
     Indication: RENAL TRANSPLANT
     Route: 064
  2. AZATHIOPRINE [Suspect]
     Route: 064
  3. PREDNISOLONE [Suspect]
     Route: 064
  4. TACROLIMUS [Suspect]
     Dosage: DRUG WITHDRAWN:  GESTATION PERIOD AT TIME OF EXPOSURE: 1TRIMESTER
     Route: 064

REACTIONS (1)
  - INTRA-UTERINE DEATH [None]
